FAERS Safety Report 17545133 (Version 1)
Quarter: 2020Q1

REPORT INFORMATION
  Report Type: Report from Study
  Country: US (occurrence: US)
  Receive Date: 20200316
  Receipt Date: 20200316
  Transmission Date: 20200409
  Serious: Yes (Death, Other)
  Sender: FDA-Public Use
  Company Number: US-MYLANLABS-2020M1027734

PATIENT
  Age: 74 Year
  Sex: Female

DRUGS (1)
  1. AMBRISENTAN TABLETS [Suspect]
     Active Substance: AMBRISENTAN
     Indication: PRODUCT USED FOR UNKNOWN INDICATION
     Dosage: 10 MILLIGRAM
     Dates: start: 20171206, end: 20200301

REACTIONS (1)
  - Death [Fatal]

NARRATIVE: CASE EVENT DATE: 20200301
